FAERS Safety Report 17328735 (Version 1)
Quarter: 2020Q1

REPORT INFORMATION
  Report Type: Spontaneous
  Country: FR (occurrence: FR)
  Receive Date: 20200127
  Receipt Date: 20200127
  Transmission Date: 20200409
  Serious: Yes (Death)
  Sender: FDA-Public Use
  Company Number: FR-MYLANLABS-2020M1008561

PATIENT
  Sex: Male
  Weight: 1.2 kg

DRUGS (3)
  1. KETAMINE [Suspect]
     Active Substance: KETAMINE
     Indication: SEDATIVE THERAPY
     Dosage: UNK
     Route: 042
     Dates: start: 20190919, end: 20190919
  2. MIDAZOLAM HYDROCHLORIDE. [Suspect]
     Active Substance: MIDAZOLAM HYDROCHLORIDE
     Indication: SEDATIVE THERAPY
     Dosage: UNK
     Route: 042
     Dates: start: 20190919, end: 20190919
  3. CUROSURF [Suspect]
     Active Substance: PORACTANT ALFA
     Indication: PREMATURE BABY
     Dosage: 1 DOSAGE FORM
     Route: 007
     Dates: start: 20190919, end: 20190919

REACTIONS (4)
  - Pneumothorax [Fatal]
  - Oxygen saturation decreased [Fatal]
  - Bradycardia [Fatal]
  - Bronchospasm [Fatal]

NARRATIVE: CASE EVENT DATE: 20190919
